FAERS Safety Report 25943776 (Version 1)
Quarter: 2025Q4

REPORT INFORMATION
  Report Type: Spontaneous
  Country: EU (occurrence: EU)
  Receive Date: 20251021
  Receipt Date: 20251021
  Transmission Date: 20260118
  Serious: Yes (Other)
  Sender: REGENERON
  Company Number: EU-BAYER-2025A136772

PATIENT
  Sex: Female

DRUGS (5)
  1. EYLEA HD [Suspect]
     Active Substance: AFLIBERCEPT
     Indication: Diabetic retinal oedema
     Dosage: ONCE, 1ST INJECTION, LEFT EYE, 114.3 MG/ML
     Route: 031
  2. EYLEA HD [Suspect]
     Active Substance: AFLIBERCEPT
     Dosage: ONCE, 2ND INJECTION, LEFT EYE, 114.3 MG/ML
     Route: 031
  3. EYLEA HD [Suspect]
     Active Substance: AFLIBERCEPT
     Dosage: ONCE, 3RD INJECTION, LEFT EYE, 114.3 MG/ML
     Route: 031
  4. EYLEA HD [Suspect]
     Active Substance: AFLIBERCEPT
     Dosage: ONCE, 4TH INJECTION, LEFT EYE, 114.3 MG/ML
     Route: 031
  5. EYLEA HD [Suspect]
     Active Substance: AFLIBERCEPT
     Dosage: ONCE, 5TH INJECTION; LEFT EYE, 114.3 MG/ML
     Route: 031
     Dates: start: 20250818, end: 20250818

REACTIONS (3)
  - Corneal endothelial disorder [Unknown]
  - Intraocular pressure increased [Unknown]
  - Visual acuity reduced [Unknown]

NARRATIVE: CASE EVENT DATE: 20250818
